FAERS Safety Report 21292509 (Version 1)
Quarter: 2022Q3

REPORT INFORMATION
  Report Type: Spontaneous
  Country: US (occurrence: US)
  Receive Date: 20220905
  Receipt Date: 20220905
  Transmission Date: 20221026
  Serious: Yes (Other)
  Sender: FDA-Public Use
  Company Number: US-SA-SAC20220902000501

PATIENT
  Sex: Male

DRUGS (4)
  1. ZANTAC [Suspect]
     Active Substance: RANITIDINE HYDROCHLORIDE
     Dosage: UNK,PRESCRIPTION ZANTAC FROM APPROXIMATELY 2013 TO 2016
     Route: 048
     Dates: start: 2013, end: 2016
  2. ZANTAC [Suspect]
     Active Substance: RANITIDINE HYDROCHLORIDE
     Dosage: UNK,OVER THE COUNTER ZANTAC FROM APPROXIMATELY 2013 TO 2016
     Route: 048
     Dates: start: 2013, end: 2016
  3. RANITIDINE [Suspect]
     Active Substance: RANITIDINE
     Dosage: UNK, OVER THE COUNTER RANITIDINE FROM APPROXIMATELY 2013 TO 2016
     Route: 048
     Dates: start: 2013, end: 2016
  4. RANITIDINE [Suspect]
     Active Substance: RANITIDINE
     Dosage: UNK, PRESCRIPTION RANITIDINE FROM APPROXIMATELY 2013 TO 2016
     Route: 048
     Dates: start: 2013, end: 2016

REACTIONS (1)
  - Prostate cancer [Unknown]
